FAERS Safety Report 17800674 (Version 1)
Quarter: 2020Q2

REPORT INFORMATION
  Report Type: Spontaneous
  Country: CN (occurrence: CN)
  Receive Date: 20200519
  Receipt Date: 20200519
  Transmission Date: 20200714
  Serious: Yes (Hospitalization)
  Sender: FDA-Public Use
  Company Number: CN-BAXTER-2020BAX010246

PATIENT
  Age: 19 Year
  Sex: Female
  Weight: 41 kg

DRUGS (4)
  1. ENDOXAN [Suspect]
     Active Substance: CYCLOPHOSPHAMIDE
     Indication: ACUTE LYMPHOCYTIC LEUKAEMIA
     Dosage: ENDOXAN 1.40 GRAM+ 0.9% NS 500 ML
     Route: 041
     Dates: start: 20200416, end: 20200416
  2. 0.9% SODIUM CHLORIDE INJECTION [Suspect]
     Active Substance: SODIUM CHLORIDE
     Indication: MEDICATION DILUTION
     Dosage: ENDOXAN 1.40 GRAM+ 0.9% NS 500 ML
     Route: 041
     Dates: start: 20200416, end: 20200416
  3. CYTARABINE HYDROCHLORIDE [Suspect]
     Active Substance: CYTARABINE HYDROCHLORIDE
     Indication: ACUTE LYMPHOCYTIC LEUKAEMIA
     Dosage: CYTARABINE HYDROCHLORIDE 100 MG+ 0.9% NS 250 ML
     Route: 041
     Dates: start: 20200418, end: 20200418
  4. 0.9% SODIUM CHLORIDE INJECTION [Suspect]
     Active Substance: SODIUM CHLORIDE
     Dosage: CYTARABINE HYDROCHLORIDE 100 MG+ 0.9% NS 250 ML
     Route: 041
     Dates: start: 20200418, end: 20200418

REACTIONS (1)
  - White blood cell count decreased [Recovering/Resolving]

NARRATIVE: CASE EVENT DATE: 20200429
